FAERS Safety Report 12436162 (Version 3)
Quarter: 2016Q2

REPORT INFORMATION
  Report Type: Spontaneous
  Country: IT (occurrence: IT)
  Receive Date: 20160605
  Receipt Date: 20160630
  Transmission Date: 20160815
  Serious: Yes (Hospitalization, Other)
  Sender: FDA-Public Use
  Company Number: IT-TEVA-664797ACC

PATIENT
  Age: 5 Year

DRUGS (2)
  1. ANTI-ASTHMATICS /OLD CODE/(ANTI-ASTHMATICS /OLD CODE/) [Concomitant]
     Indication: ASTHMA
     Route: 065
  2. TAMOXIFEN [Suspect]
     Active Substance: TAMOXIFEN
     Indication: ACCIDENTAL EXPOSURE TO PRODUCT
     Dosage: 20 MG TOTAL
     Route: 048

REACTIONS (3)
  - Accidental exposure to product [Recovered/Resolved]
  - Electrocardiogram QT prolonged [Recovered/Resolved]
  - Product use issue [Unknown]
